FAERS Safety Report 8207692-X (Version None)
Quarter: 2012Q1

REPORT INFORMATION
  Report Type: 
  Country: None (occurrence: None)
  Receive Date: 20120314
  Receipt Date: 20120305
  Transmission Date: 20120608
  Serious: Yes (Death, Life-Threatening, Hospitalization)
  Sender: FDA-Public Use
  Company Number: HU-SANOFI-AVENTIS-2012SA008600

PATIENT
  Sex: Male
  Weight: 76 kg

DRUGS (4)
  1. METFORMIN HCL [Concomitant]
     Indication: DIABETES MELLITUS
     Route: 048
  2. PREDNISOLONE [Suspect]
     Dates: start: 20110929, end: 20120207
  3. CABAZITAXEL [Suspect]
     Route: 042
     Dates: start: 20120202, end: 20120202
  4. CABAZITAXEL [Suspect]
     Route: 042
     Dates: start: 20110929, end: 20110929

REACTIONS (5)
  - DIABETIC KETOACIDOSIS [None]
  - PNEUMONIA [None]
  - ARRHYTHMIA [None]
  - AGRANULOCYTOSIS [None]
  - FEBRILE NEUTROPENIA [None]
